FAERS Safety Report 5327886-0 (Version None)
Quarter: 2007Q2

REPORT INFORMATION
  Report Type: 
  Country: None (occurrence: None)
  Receive Date: 20070517
  Receipt Date: 20070506
  Transmission Date: 20071010
  Serious: Yes (Death, Life-Threatening, Hospitalization)
  Sender: FDA-Public Use
  Company Number: DE-PFIZER INC-2007028862

PATIENT
  Sex: Male
  Weight: 90 kg

DRUGS (7)
  1. SU-011,248 [Suspect]
     Indication: METASTATIC RENAL CELL CARCINOMA
     Route: 048
     Dates: start: 20060414, end: 20060511
  2. SU-011,248 [Suspect]
     Route: 048
     Dates: start: 20070316, end: 20070402
  3. AVELOX [Concomitant]
     Route: 048
     Dates: start: 20070301, end: 20070402
  4. ROCEPHIN [Concomitant]
     Route: 042
     Dates: start: 20070402, end: 20070406
  5. KANAVIT [Concomitant]
     Route: 042
     Dates: start: 20070402, end: 20070406
  6. CLEXANE [Concomitant]
     Route: 058
     Dates: start: 20070402, end: 20070406
  7. FUROSEMIDE [Concomitant]
     Route: 042
     Dates: start: 20070402, end: 20070406

REACTIONS (3)
  - CARDIAC FAILURE [None]
  - HEPATIC FAILURE [None]
  - RENAL FAILURE [None]
